FAERS Safety Report 23941123 (Version 4)
Quarter: 2024Q3

REPORT INFORMATION
  Report Type: Spontaneous
  Country: CA (occurrence: CA)
  Receive Date: 20240605
  Receipt Date: 20240926
  Transmission Date: 20241016
  Serious: No
  Sender: PFIZER
  Company Number: CA-PFIZER INC-202400172061

PATIENT
  Age: 37 Year
  Sex: Female

DRUGS (2)
  1. ABRILADA [Suspect]
     Active Substance: ADALIMUMAB-AFZB
     Indication: SAPHO syndrome
     Dosage: 40 MG, EVERY 2 WEEKS
     Route: 058
     Dates: start: 20230820
  2. ABRILADA [Suspect]
     Active Substance: ADALIMUMAB-AFZB
     Dosage: 40 MG, (40 WEEKS AND 5 DAYS) PRESCRIBED  EVERY 2 WEEKS
     Route: 058
     Dates: start: 20240531

REACTIONS (2)
  - Off label use [Unknown]
  - Inappropriate schedule of product administration [Unknown]

NARRATIVE: CASE EVENT DATE: 20230820
